FAERS Safety Report 13387699 (Version 1)
Quarter: 2017Q1

REPORT INFORMATION
  Report Type: Report from Study
  Country: US (occurrence: US)
  Receive Date: 20170330
  Receipt Date: 20170330
  Transmission Date: 20170429
  Serious: Yes (Death)
  Sender: FDA-Public Use
  Company Number: US-ACTELION-A-NJ2016-129787

PATIENT
  Age: 71 Year
  Sex: Male
  Weight: 150.11 kg

DRUGS (2)
  1. OPSUMIT [Suspect]
     Active Substance: MACITENTAN
     Indication: PULMONARY ARTERIAL HYPERTENSION
     Dosage: 10 MG, UNK
     Route: 048
     Dates: start: 20141002
  2. WARFARIN [Concomitant]
     Active Substance: WARFARIN

REACTIONS (6)
  - Malaise [Unknown]
  - Cardiac disorder [Fatal]
  - Dyspnoea [Unknown]
  - Atrial fibrillation [Unknown]
  - Bacterial test positive [Unknown]
  - Dyspnoea exertional [Unknown]

NARRATIVE: CASE EVENT DATE: 20170317
